FAERS Safety Report 10032461 (Version 1)
Quarter: 2014Q1

REPORT INFORMATION
  Report Type: Report from Study
  Country: CA (occurrence: CA)
  Receive Date: 20140324
  Receipt Date: 20140324
  Transmission Date: 20141002
  Serious: Yes (Other)
  Sender: FDA-Public Use
  Company Number: CA-BRISTOL-MYERS SQUIBB COMPANY-20509576

PATIENT
  Age: 62 Year
  Sex: Male

DRUGS (10)
  1. ORENCIA [Suspect]
     Indication: RHEUMATOID ARTHRITIS
     Dosage: 1DF: 750 UNIT NOS
     Route: 042
     Dates: start: 20120913
  2. PANTOPRAZOLE [Concomitant]
  3. PREDNISONE [Concomitant]
  4. NAPROXEN [Concomitant]
  5. FOLIC ACID [Concomitant]
  6. METHOTREXATE [Concomitant]
  7. EURO D [Concomitant]
  8. CARBOCAL [Concomitant]
  9. DIOVAN HCT [Concomitant]
  10. AMLODIPINE [Concomitant]

REACTIONS (1)
  - Arthropathy [Unknown]
